FAERS Safety Report 9738579 (Version 2)
Quarter: 2014Q1

REPORT INFORMATION
  Report Type: Report from Study
  Country: US (occurrence: US)
  Receive Date: 20131209
  Receipt Date: 20140304
  Transmission Date: 20141002
  Serious: Yes (Hospitalization, Other)
  Sender: FDA-Public Use
  Company Number: US-TEVA-449340USA

PATIENT
  Age: 76 Year
  Sex: Male

DRUGS (1)
  1. TREANDA [Suspect]
     Indication: CHRONIC LYMPHOCYTIC LEUKAEMIA
     Dosage: Q 28 DAYS
     Route: 042
     Dates: start: 20120924, end: 20121023

REACTIONS (3)
  - Tumour flare [Recovered/Resolved]
  - Tumour lysis syndrome [Recovered/Resolved]
  - Adenocarcinoma of colon [Unknown]
